FAERS Safety Report 4382433-5 (Version None)
Quarter: 2004Q2

REPORT INFORMATION
  Report Type: 
  Country: None (occurrence: None)
  Receive Date: 20040622
  Receipt Date: 20040609
  Transmission Date: 20050107
  Serious: Yes (Hospitalization)
  Sender: FDA-Public Use
  Company Number: FR-AMGEN-UK079529

PATIENT
  Age: 50 Year
  Sex: Female

DRUGS (4)
  1. NEULASTA [Suspect]
     Indication: CHEMOTHERAPY
  2. FLUOROURACIL [Concomitant]
  3. ETOPOSIDE [Concomitant]
  4. CISPLATIN [Concomitant]

REACTIONS (2)
  - ANAEMIA [None]
  - CYTOLYTIC HEPATITIS [None]
